FAERS Safety Report 4354944-X (Version None)
Quarter: 2004Q2

REPORT INFORMATION
  Report Type: 
  Country: None (occurrence: None)
  Receive Date: 20040504
  Receipt Date: 20040416
  Transmission Date: 20050107
  Serious: Yes (Hospitalization)
  Sender: FDA-Public Use
  Company Number: A02200401246

PATIENT
  Age: 32 Month
  Sex: Male

DRUGS (8)
  1. FASTURTEC- (RASBURICASE) - SOLUTION [Suspect]
     Indication: HYPERURICAEMIA
     Dosage: 3.2 MG QD INTRAVENOUS NOS
     Route: 042
     Dates: start: 20040225, end: 20040229
  2. FASTURTEC- (RASBURICASE) - SOLUTION [Suspect]
     Indication: PROPHYLAXIS
     Dosage: 3.2 MG QD INTRAVENOUS NOS
     Route: 042
     Dates: start: 20040225, end: 20040229
  3. FASTURTEC- (RASBURICASE) - SOLUTION [Suspect]
     Indication: HYPERURICAEMIA
     Dosage: 3.2 MG QD INTRAVENOUS NOS
     Route: 042
     Dates: start: 20040302, end: 20040302
  4. FASTURTEC- (RASBURICASE) - SOLUTION [Suspect]
     Indication: PROPHYLAXIS
     Dosage: 3.2 MG QD INTRAVENOUS NOS
     Route: 042
     Dates: start: 20040302, end: 20040302
  5. FASTURTEC- (RASBURICASE) - SOLUTION [Suspect]
     Indication: HYPERURICAEMIA
     Dosage: 3.2 MG QD INTRAVENOUS NOS
     Route: 042
     Dates: start: 20040305, end: 20040305
  6. FASTURTEC- (RASBURICASE) - SOLUTION [Suspect]
     Indication: PROPHYLAXIS
     Dosage: 3.2 MG QD INTRAVENOUS NOS
     Route: 042
     Dates: start: 20040305, end: 20040305
  7. SOLU-MEDROL [Concomitant]
  8. BACTRIM (SULFAMETHOXAZOLE/TRIMTHOPRIME) [Concomitant]

REACTIONS (3)
  - ALANINE AMINOTRANSFERASE INCREASED [None]
  - ASPARTATE AMINOTRANSFERASE INCREASED [None]
  - HEPATOCELLULAR DAMAGE [None]
